FAERS Safety Report 8789599 (Version 1)
Quarter: 2012Q4

REPORT INFORMATION
  Report Type: Spontaneous
  Country: US (occurrence: None)
  Receive Date: 20120910
  Receipt Date: 20120910
  Transmission Date: 20130627
  Serious: Yes (Life-Threatening, Other)
  Sender: FDA-Public Use
  Company Number: None

PATIENT
  Age: 35 Year
  Sex: Male

DRUGS (1)
  1. LOPRESSOR [Suspect]
     Indication: HEART ATTACK
     Route: 048

REACTIONS (3)
  - Dyspnoea [None]
  - Fatigue [None]
  - Dizziness [None]
